FAERS Safety Report 5923092-7 (Version None)
Quarter: 2008Q4

REPORT INFORMATION
  Report Type: 
  Country: None (occurrence: None)
  Receive Date: 20081018
  Receipt Date: 20081007
  Transmission Date: 20090506
  Serious: Yes (Hospitalization)
  Sender: FDA-Public Use
  Company Number: FR-PFIZER INC-2008084983

PATIENT
  Sex: Female

DRUGS (4)
  1. DALACINE IV [Suspect]
     Indication: BULLOUS IMPETIGO
     Route: 042
     Dates: start: 20080831, end: 20080908
  2. CLOXACILLIN [Suspect]
     Indication: BULLOUS IMPETIGO
     Route: 042
     Dates: start: 20080831, end: 20080905
  3. ENOXAPARIN SODIUM [Suspect]
     Indication: THROMBOSIS PROPHYLAXIS
     Route: 058
     Dates: start: 20080831, end: 20080910
  4. TRAMADOL HCL [Suspect]
     Indication: PAIN
     Route: 048
     Dates: start: 20080831, end: 20080908

REACTIONS (4)
  - DRUG RASH WITH EOSINOPHILIA AND SYSTEMIC SYMPTOMS [None]
  - ECZEMA [None]
  - EOSINOPHILIA [None]
  - OEDEMA [None]
